FAERS Safety Report 8320566-9 (Version None)
Quarter: 2012Q2

REPORT INFORMATION
  Report Type: 
  Country: None (occurrence: None)
  Receive Date: 20120430
  Receipt Date: 20120423
  Transmission Date: 20120825
  Serious: Yes (Other)
  Sender: FDA-Public Use
  Company Number: BR-PFIZER INC-2012100965

PATIENT
  Age: 76 Year
  Sex: Male
  Weight: 90 kg

DRUGS (8)
  1. DONAREN [Concomitant]
     Indication: SEDATIVE THERAPY
     Dosage: UNK
     Dates: start: 20100101
  2. METOPROLOL SUCCINATE [Concomitant]
     Indication: DRUG THERAPY
     Dosage: UNK
  3. ENALAPRIL [Concomitant]
     Indication: HYPERTENSION
     Dosage: UNK
  4. CAVERJECT [Suspect]
     Indication: ERECTILE DYSFUNCTION
     Dosage: 10 UG, UNK
     Route: 017
  5. LEXOTAN [Concomitant]
     Indication: AGITATION
  6. CAVERJECT [Suspect]
     Dosage: 20 UG, UNK
     Route: 017
  7. DONAREN [Concomitant]
     Indication: AGITATION
  8. LEXOTAN [Concomitant]
     Indication: SEDATIVE THERAPY
     Dosage: UNK
     Dates: start: 20100101

REACTIONS (4)
  - THERAPEUTIC RESPONSE DECREASED [None]
  - CEREBROVASCULAR ACCIDENT [None]
  - WEIGHT DECREASED [None]
  - PENILE PAIN [None]
